FAERS Safety Report 8807369 (Version 1)
Quarter: 2012Q4

REPORT INFORMATION
  Report Type: 
  Country: US (occurrence: US)
  Receive Date: 20120925
  Receipt Date: 20120925
  Transmission Date: 20130627
  Serious: Yes (Hospitalization, Other)
  Sender: FDA-Public Use
  Company Number: US-BAXTER-2012BAX016856

PATIENT
  Sex: Female

DRUGS (1)
  1. DIANEAL LOW CALCIUM [Suspect]
     Indication: PERITONEAL DIALYSIS
     Route: 033

REACTIONS (6)
  - Cardiac disorder [Unknown]
  - Oedema peripheral [Unknown]
  - Fluid retention [Recovering/Resolving]
  - Peritonitis bacterial [Recovering/Resolving]
  - Fluid overload [Not Recovered/Not Resolved]
  - Peritoneal dialysis complication [Recovered/Resolved]
